FAERS Safety Report 19389660 (Version 1)
Quarter: 2021Q2

REPORT INFORMATION
  Report Type: Spontaneous
  Country: CA (occurrence: CA)
  Receive Date: 20210608
  Receipt Date: 20210608
  Transmission Date: 20210717
  Serious: Yes (Other)
  Sender: FDA-Public Use
  Company Number: CA-JNJFOC-20210610462

PATIENT
  Age: 39 Year
  Sex: Female
  Weight: 46 kg

DRUGS (4)
  1. HYDROCORTISONE. [Concomitant]
     Active Substance: HYDROCORTISONE
     Indication: PREMEDICATION
  2. INFLIXIMAB, RECOMBINANT [Suspect]
     Active Substance: INFLIXIMAB
     Indication: CROHN^S DISEASE
     Route: 042
  3. ENTOCORT [Concomitant]
     Active Substance: BUDESONIDE
  4. IRON [Concomitant]
     Active Substance: IRON
     Route: 042

REACTIONS (4)
  - Syncope [Unknown]
  - Post procedural haemorrhage [Unknown]
  - Intentional product use issue [Unknown]
  - Off label use [Unknown]
